FAERS Safety Report 10288303 (Version 1)
Quarter: 2014Q3

REPORT INFORMATION
  Report Type: Spontaneous
  Country: US (occurrence: US)
  Receive Date: 20140709
  Receipt Date: 20140709
  Transmission Date: 20150326
  Serious: Yes (Other)
  Sender: FDA-Public Use
  Company Number: US-PFIZER INC-2014187969

PATIENT
  Sex: Female

DRUGS (1)
  1. NEURONTIN [Suspect]
     Active Substance: GABAPENTIN
     Indication: BIPOLAR DISORDER
     Dosage: UNK

REACTIONS (9)
  - Oropharyngeal spasm [Unknown]
  - VIIth nerve paralysis [Unknown]
  - Dyspnoea [Not Recovered/Not Resolved]
  - Speech disorder [Unknown]
  - Tremor [Unknown]
  - Bladder discomfort [Unknown]
  - Dysuria [Unknown]
  - Dysphonia [Unknown]
  - Hearing impaired [Unknown]
